FAERS Safety Report 25943821 (Version 2)
Quarter: 2025Q4

REPORT INFORMATION
  Report Type: Spontaneous
  Country: EU (occurrence: EU)
  Receive Date: 20251021
  Receipt Date: 20251107
  Transmission Date: 20260118
  Serious: Yes (Death, Other)
  Sender: TEVA
  Company Number: EU-TEVA-VS-3383532

PATIENT
  Age: 62 Year
  Sex: Male

DRUGS (9)
  1. FLUOROURACIL [Suspect]
     Active Substance: FLUOROURACIL
     Indication: Colorectal cancer metastatic
     Dosage: ADMINISTERED AS A PART OF FOLFOX AND FOLFIRI REGIMEN
     Route: 065
  2. OXALIPLATIN [Suspect]
     Active Substance: OXALIPLATIN
     Indication: Colorectal cancer metastatic
     Dosage: ADMINISTERED AS A PART OF FOLFOX REGIMEN
     Route: 065
  3. TIPIRACIL HYDROCHLORIDE\TRIFLURIDINE [Suspect]
     Active Substance: TIPIRACIL HYDROCHLORIDE\TRIFLURIDINE
     Indication: Colorectal cancer metastatic
     Route: 065
  4. REGORAFENIB [Suspect]
     Active Substance: REGORAFENIB
     Indication: Colorectal cancer metastatic
     Route: 065
  5. BEVACIZUMAB [Suspect]
     Active Substance: BEVACIZUMAB
     Indication: Colorectal cancer metastatic
     Route: 065
  6. LEUCOVORIN [Suspect]
     Active Substance: LEUCOVORIN\LEUCOVORIN CALCIUM
     Indication: Colorectal cancer metastatic
     Dosage: ADMINISTERED AS A PART OF FOLFOX AND FOLFIRI REGIMEN
     Route: 065
  7. IRINOTECAN [Suspect]
     Active Substance: IRINOTECAN
     Indication: Colorectal cancer metastatic
     Dosage: ADMINISTERED AS A PART OF FOLFIRI REGIMEN
     Route: 065
  8. PANITUMUMAB [Suspect]
     Active Substance: PANITUMUMAB
     Indication: Colorectal cancer metastatic
     Route: 065
  9. AFLIBERCEPT [Suspect]
     Active Substance: AFLIBERCEPT
     Indication: Colorectal cancer metastatic
     Route: 065

REACTIONS (9)
  - Rash [Fatal]
  - Drug ineffective [Fatal]
  - Weight decreased [Fatal]
  - Shock haemorrhagic [Fatal]
  - Neuropathy peripheral [Fatal]
  - Rectal haemorrhage [Fatal]
  - Diarrhoea [Fatal]
  - Cardio-respiratory arrest [Fatal]
  - False positive investigation result [Fatal]
